FAERS Safety Report 5639792-2 (Version None)
Quarter: 2008Q1

REPORT INFORMATION
  Report Type: 
  Country: None (occurrence: None)
  Receive Date: 20080227
  Receipt Date: 20080221
  Transmission Date: 20080703
  Serious: Yes (Life-Threatening, Hospitalization, Other)
  Sender: FDA-Public Use
  Company Number: GB-BRISTOL-MYERS SQUIBB COMPANY-14085153

PATIENT
  Age: 36 Year
  Sex: Female

DRUGS (3)
  1. ABILIFY [Suspect]
     Dosage: ON 12-JAN-08 5MG DAILY,ON 18-JAN-08 INCREASED TO 10MG DAILY. DRUG WITHDRAWN ON 04-FEB-2008
     Dates: start: 20080118
  2. DIAZEPAM [Suspect]
     Dates: start: 20080105
  3. PHENYTOIN [Suspect]
     Indication: CONVULSION

REACTIONS (3)
  - CONVULSION [None]
  - RESPIRATORY ARREST [None]
  - STATUS EPILEPTICUS [None]
